FAERS Safety Report 8514154-9 (Version None)
Quarter: 2012Q2

REPORT INFORMATION
  Report Type: 
  Country: None (occurrence: None)
  Receive Date: 20120406
  Receipt Date: 20120213
  Transmission Date: 20120825
  Serious: Yes (Hospitalization, Other)
  Sender: FDA-Public Use
  Company Number: US-CYPR-2011-000089

PATIENT
  Sex: Female
  Weight: 83.4619 kg

DRUGS (11)
  1. SIMVASTATIN [Concomitant]
  2. ISOSORBIDE MONONITRATE [Concomitant]
  3. FUROSEMIDE [Concomitant]
  4. DIOVAN [Concomitant]
  5. CARVEDILOL [Concomitant]
  6. PEPCID [Concomitant]
  7. CLOPIDOGREL [Suspect]
     Indication: ANTIPLATELET THERAPY
     Dosage: (75 MG QD ORAL)
     Route: 048
     Dates: start: 20110211, end: 20111028
  8. ASPIRIN [Suspect]
     Indication: CORONARY ARTERY DISEASE
     Dosage: (325 MG QD ORAL)
     Route: 048
     Dates: start: 20060112
  9. RANEXA [Concomitant]
  10. NIASPAN [Concomitant]
  11. CYPHER STENT [Concomitant]

REACTIONS (1)
  - IN-STENT CORONARY ARTERY RESTENOSIS [None]
